FAERS Safety Report 8999722 (Version 5)
Quarter: 2013Q2

REPORT INFORMATION
  Report Type: Spontaneous
  Country: JP (occurrence: JP)
  Receive Date: 20130102
  Receipt Date: 20130620
  Transmission Date: 20140414
  Serious: Yes (Hospitalization)
  Sender: FDA-Public Use
  Company Number: JP-GLAXOSMITHKLINE-B0855584A

PATIENT
  Age: 50 Year
  Sex: Female
  Weight: 39 kg

DRUGS (3)
  1. HYCAMTIN [Suspect]
     Indication: OVARIAN CANCER RECURRENT
     Dosage: 1MGM2 PER DAY
     Route: 042
     Dates: start: 20120625, end: 20120629
  2. LASTET [Suspect]
     Indication: OVARIAN CANCER RECURRENT
     Route: 048
     Dates: start: 20120625, end: 20120705
  3. DECADRON [Concomitant]
     Route: 042
     Dates: start: 20120625, end: 20120629

REACTIONS (7)
  - Decreased appetite [Not Recovered/Not Resolved]
  - Fatigue [Not Recovered/Not Resolved]
  - White blood cell count decreased [Recovered/Resolved]
  - Neutrophil count decreased [Recovered/Resolved]
  - Red blood cell count decreased [Recovering/Resolving]
  - Anaemia [Recovering/Resolving]
  - Platelet count decreased [Recovered/Resolved]
